FAERS Safety Report 19837014 (Version 1)
Quarter: 2021Q3

REPORT INFORMATION
  Report Type: Report from Study
  Country: BR (occurrence: BR)
  Receive Date: 20210914
  Receipt Date: 20210914
  Transmission Date: 20211014
  Serious: Yes (Hospitalization, Other)
  Sender: FDA-Public Use
  Company Number: NVSC2021BR201263

PATIENT
  Sex: Female

DRUGS (1)
  1. COSENTYX [Suspect]
     Active Substance: SECUKINUMAB
     Indication: PSORIATIC ARTHROPATHY
     Dosage: 300 MG, QMO
     Route: 065
     Dates: start: 201808

REACTIONS (11)
  - Inflammation [Unknown]
  - Onychalgia [Unknown]
  - Postoperative wound infection [Unknown]
  - Peripheral swelling [Unknown]
  - Rebound psoriasis [Not Recovered/Not Resolved]
  - Hypoaesthesia [Unknown]
  - Wound secretion [Unknown]
  - Purulence [Unknown]
  - Yellow skin [Unknown]
  - Skin disorder [Unknown]
  - Memory impairment [Unknown]

NARRATIVE: CASE EVENT DATE: 2020
